FAERS Safety Report 18623160 (Version 15)
Quarter: 2021Q2

REPORT INFORMATION
  Report Type: Report from Study
  Country: PT (occurrence: PT)
  Receive Date: 20201216
  Receipt Date: 20210527
  Transmission Date: 20210717
  Serious: Yes (Hospitalization, Other)
  Sender: FDA-Public Use
  Company Number: PT-SA-2020SA356182

PATIENT
  Age: 7 Year
  Sex: Female
  Weight: 23.6 kg

DRUGS (64)
  1. VINCRISTINE SULFATE. [Suspect]
     Active Substance: VINCRISTINE SULFATE
     Indication: T-CELL TYPE ACUTE LEUKAEMIA
     Dosage: 1.5 MG/M2 ON DAY 38
     Route: 042
     Dates: start: 20201209, end: 20201209
  2. METHOTREXATE. [Suspect]
     Active Substance: METHOTREXATE
     Indication: T-CELL TYPE ACUTE LEUKAEMIA
     Dosage: 1000 MG/M2 ON DAY 43, INFUSED OVER 36 HOURS AND FOLINATE RESCUE STARTED 48 HOURS FROM START OF THE I
     Route: 065
  3. METHOTREXATE. [Suspect]
     Active Substance: METHOTREXATE
     Dosage: ON DAY 1
     Route: 042
  4. METHOTREXATE. [Concomitant]
     Active Substance: METHOTREXATE
     Indication: PROPHYLAXIS
     Dosage: UNK
     Route: 065
     Dates: start: 20201130, end: 20201130
  5. METHOTREXATE. [Concomitant]
     Active Substance: METHOTREXATE
     Dosage: UNK
     Route: 065
     Dates: start: 20201207, end: 20201207
  6. HYDROCORTISONE. [Concomitant]
     Active Substance: HYDROCORTISONE
     Dosage: UNK
     Route: 065
     Dates: start: 20201207, end: 20201207
  7. CLEMASTINE [Concomitant]
     Active Substance: CLEMASTINE
     Dosage: 0.68 MG, 1X
     Route: 042
     Dates: start: 20201221, end: 20201221
  8. MEROPENEM. [Concomitant]
     Active Substance: MEROPENEM
     Dosage: UNK
     Route: 042
     Dates: start: 20201223, end: 20210105
  9. PLATELETS [Concomitant]
     Active Substance: HUMAN PLATELET, ALLOGENIC
     Dosage: UNK
     Route: 042
     Dates: start: 20201207, end: 20201207
  10. PLATELETS [Concomitant]
     Active Substance: HUMAN PLATELET, ALLOGENIC
     Dosage: UNK
     Route: 042
     Dates: start: 20201221, end: 20201221
  11. ISATUXIMAB [Suspect]
     Active Substance: ISATUXIMAB
     Indication: T-CELL TYPE ACUTE LEUKAEMIA
     Dosage: 20 MG/KG ON DAYS 43 AND 57
     Route: 042
     Dates: start: 20201207, end: 20201207
  12. DEXAMETHASONE. [Suspect]
     Active Substance: DEXAMETHASONE
     Dosage: 10 MG/M2 ON DAYS ?3, ?2, ?1, 1, 8, 15 TO 19, 22, AND 29 TO 33
     Route: 065
  13. MITOXANTRONE [Suspect]
     Active Substance: MITOXANTRONE HYDROCHLORIDE
     Indication: T-CELL TYPE ACUTE LEUKAEMIA
     Dosage: 10 MG/M2
     Route: 042
     Dates: start: 20201201, end: 20201201
  14. MONTELUKAST [Concomitant]
     Active Substance: MONTELUKAST SODIUM
     Dosage: 5 MG, 1X
     Route: 048
     Dates: start: 20201221, end: 20201221
  15. CLEMASTINE [Concomitant]
     Active Substance: CLEMASTINE
     Dosage: 0.68 MG, 1X
     Route: 042
     Dates: start: 20201207, end: 20201207
  16. CLEMASTINE [Concomitant]
     Active Substance: CLEMASTINE
     Dosage: 0.68 MG, 1X
     Route: 042
     Dates: start: 20201214, end: 20201214
  17. VANCOMYCIN [Concomitant]
     Active Substance: VANCOMYCIN
     Dosage: UNK
     Route: 042
     Dates: start: 20201220, end: 20210104
  18. LEVETIRACETAM. [Concomitant]
     Active Substance: LEVETIRACETAM
     Dosage: UNK
     Route: 048
     Dates: start: 20201228, end: 20210107
  19. MORPHINE [Concomitant]
     Active Substance: MORPHINE
     Dosage: UNK
     Route: 041
     Dates: start: 20201226, end: 20201227
  20. MIRTAZAPINE. [Concomitant]
     Active Substance: MIRTAZAPINE
     Dosage: UNK
     Route: 048
     Dates: start: 20201226, end: 20201228
  21. RED BLOOD CELLS [Concomitant]
     Active Substance: HUMAN RED BLOOD CELL
     Dosage: UNK
     Route: 042
     Dates: start: 20201210, end: 20201210
  22. DEXAMETHASONE. [Concomitant]
     Active Substance: DEXAMETHASONE
     Dosage: 9.5 MG, 1X
     Route: 042
     Dates: start: 20201207, end: 20201207
  23. DEXAMETHASONE. [Concomitant]
     Active Substance: DEXAMETHASONE
     Dosage: 9.5 MG, 1X
     Route: 042
     Dates: start: 20201221, end: 20201221
  24. ASPARAGINASE [Suspect]
     Active Substance: ASPARAGINASE
     Dosage: 1000 IU/M? IM, DAYS 10 AND 24
     Route: 030
  25. CYTARABINE. [Concomitant]
     Active Substance: CYTARABINE
     Dosage: UNK
     Route: 065
     Dates: start: 20201221, end: 20201221
  26. PARACETAMOL [Concomitant]
     Active Substance: ACETAMINOPHEN
     Indication: PROPHYLAXIS
     Dosage: 400 MG, 1X
     Route: 048
     Dates: start: 20201130, end: 20201130
  27. MORPHINE [Concomitant]
     Active Substance: MORPHINE
     Dosage: UNK
     Route: 048
     Dates: start: 20201224, end: 20201225
  28. PLATELETS [Concomitant]
     Active Substance: HUMAN PLATELET, ALLOGENIC
     Dosage: UNK
     Route: 042
     Dates: start: 20201211, end: 20201211
  29. VINCRISTINE SULFATE. [Suspect]
     Active Substance: VINCRISTINE SULFATE
     Dosage: 1.5 MG/M2, ON DAYS 10,17, 24, AND 31
     Route: 042
  30. ESOMEPRAZOLE. [Concomitant]
     Active Substance: ESOMEPRAZOLE MAGNESIUM
     Indication: PROPHYLAXIS
     Dosage: UNK
     Route: 048
     Dates: start: 20201123, end: 20210111
  31. PARACETAMOL [Concomitant]
     Active Substance: ACETAMINOPHEN
     Dosage: 400 MG, 1X
     Route: 048
     Dates: start: 20201207, end: 20201207
  32. DEXAMETHASONE. [Suspect]
     Active Substance: DEXAMETHASONE
     Indication: T-CELL TYPE ACUTE LEUKAEMIA
     Dosage: 10 MG/M2 ON DAYS 43 TO 47 AND 57, WITHIN 60 MINUTES
     Route: 065
  33. MITOXANTRONE [Suspect]
     Active Substance: MITOXANTRONE HYDROCHLORIDE
     Dosage: 10 MG/M2, DAYS 8 AND 9
     Route: 042
  34. METHOTREXATE. [Concomitant]
     Active Substance: METHOTREXATE
     Dosage: UNK
     Route: 065
     Dates: start: 20201221, end: 20201221
  35. CYTARABINE. [Concomitant]
     Active Substance: CYTARABINE
     Indication: PROPHYLAXIS
     Dosage: UNK
     Route: 065
     Dates: start: 20201130, end: 20201130
  36. HYDROCORTISONE. [Concomitant]
     Active Substance: HYDROCORTISONE
     Dosage: UNK
     Route: 065
     Dates: start: 20201214, end: 20201214
  37. FLUCONAZOLE. [Concomitant]
     Active Substance: FLUCONAZOLE
     Indication: PROPHYLAXIS
     Dosage: UNK
     Route: 048
     Dates: start: 20201204, end: 20201207
  38. PARACETAMOL [Concomitant]
     Active Substance: ACETAMINOPHEN
     Dosage: 400 MG, 1X
     Route: 048
     Dates: start: 20201214, end: 20201214
  39. CLEMASTINE [Concomitant]
     Active Substance: CLEMASTINE
     Indication: PROPHYLAXIS
     Dosage: 0.68 MG, 1X
     Route: 042
     Dates: start: 20201130, end: 20201130
  40. ACICLOVIR [Concomitant]
     Active Substance: ACYCLOVIR
     Indication: PROPHYLAXIS
     Dosage: UNK
     Route: 042
     Dates: start: 20201228, end: 20201231
  41. MORPHINE [Concomitant]
     Active Substance: MORPHINE
     Dosage: UNK
     Route: 040
     Dates: start: 20201219, end: 20210105
  42. DEXAMETHASONE. [Concomitant]
     Active Substance: DEXAMETHASONE
     Dosage: 9.5 MG, 1X
     Route: 042
     Dates: start: 20201214, end: 20201214
  43. ISATUXIMAB [Suspect]
     Active Substance: ISATUXIMAB
     Dosage: 20 MG/KG, QW
     Route: 042
     Dates: start: 20201123, end: 20201123
  44. MONTELUKAST [Concomitant]
     Active Substance: MONTELUKAST SODIUM
     Indication: PROPHYLAXIS
     Dosage: 5 MG, 1X
     Route: 048
     Dates: start: 20201130, end: 20201130
  45. LACTULOSE. [Concomitant]
     Active Substance: LACTULOSE
     Dosage: UNK
     Route: 048
     Dates: start: 20201211, end: 20201221
  46. PLATELETS [Concomitant]
     Active Substance: HUMAN PLATELET, ALLOGENIC
     Dosage: UNK
     Route: 042
     Dates: start: 20201218, end: 20201218
  47. CYTARABINE. [Concomitant]
     Active Substance: CYTARABINE
     Dosage: UNK
     Route: 065
     Dates: start: 20201214, end: 20201214
  48. HYDROCORTISONE. [Concomitant]
     Active Substance: HYDROCORTISONE
     Indication: PROPHYLAXIS
     Dosage: UNK
     Route: 065
     Dates: start: 20201130, end: 20201130
  49. FLUCONAZOLE. [Concomitant]
     Active Substance: FLUCONAZOLE
     Dosage: UNK
     Route: 048
     Dates: start: 20201211, end: 20201214
  50. PARACETAMOL [Concomitant]
     Active Substance: ACETAMINOPHEN
     Dosage: 400 MG, 1X
     Route: 048
     Dates: start: 20201221, end: 20201221
  51. METHYLPREDNISOLONE. [Concomitant]
     Active Substance: METHYLPREDNISOLONE
     Dosage: UNK
     Route: 042
     Dates: start: 20201230, end: 20210105
  52. RED BLOOD CELLS [Concomitant]
     Active Substance: HUMAN RED BLOOD CELL
     Dosage: UNK
     Route: 042
     Dates: start: 20201218, end: 20201218
  53. PLATELETS [Concomitant]
     Active Substance: HUMAN PLATELET, ALLOGENIC
     Dosage: UNK
     Route: 042
     Dates: start: 20201214, end: 20201214
  54. DOXORUBICIN [Suspect]
     Active Substance: DOXORUBICIN
     Indication: T-CELL TYPE ACUTE LEUKAEMIA
     Dosage: 25 MG/M2
     Route: 042
  55. DOXORUBICIN [Suspect]
     Active Substance: DOXORUBICIN
     Dosage: 25 MG/M2
     Route: 042
  56. ASPARAGINASE [Suspect]
     Active Substance: ASPARAGINASE
     Indication: T-CELL TYPE ACUTE LEUKAEMIA
     Dosage: 1000 IU/M? IM ON DAY 44
     Route: 030
     Dates: start: 20201202, end: 20201202
  57. MONTELUKAST [Concomitant]
     Active Substance: MONTELUKAST SODIUM
     Dosage: 5 MG, 1X
     Route: 048
     Dates: start: 20201207, end: 20201207
  58. MONTELUKAST [Concomitant]
     Active Substance: MONTELUKAST SODIUM
     Dosage: 5 MG, 1X
     Route: 048
     Dates: start: 20201214, end: 20201214
  59. METHOTREXATE. [Concomitant]
     Active Substance: METHOTREXATE
     Dosage: UNK
     Route: 065
     Dates: start: 20201214, end: 20201214
  60. CYTARABINE. [Concomitant]
     Active Substance: CYTARABINE
     Dosage: UNK
     Route: 065
     Dates: start: 20201207, end: 20201207
  61. HYDROCORTISONE. [Concomitant]
     Active Substance: HYDROCORTISONE
     Dosage: UNK
     Route: 065
     Dates: start: 20201221, end: 20201221
  62. AMPHOTERICIN B, LIPOSOME [Concomitant]
     Active Substance: AMPHOTERICIN B
     Dosage: UNK
     Route: 042
     Dates: start: 20201216, end: 20210105
  63. PLATELETS [Concomitant]
     Active Substance: HUMAN PLATELET, ALLOGENIC
     Dosage: UNK
     Route: 042
     Dates: start: 20201224, end: 20201224
  64. DEXAMETHASONE. [Concomitant]
     Active Substance: DEXAMETHASONE
     Dosage: 9.8 MG, 1X
     Route: 042
     Dates: start: 20201130, end: 20201130

REACTIONS (2)
  - Febrile neutropenia [Recovered/Resolved]
  - Leukoencephalopathy [Not Recovered/Not Resolved]

NARRATIVE: CASE EVENT DATE: 20201209
